FAERS Safety Report 5852856-3 (Version None)
Quarter: 2008Q3

REPORT INFORMATION
  Report Type: 
  Country: None (occurrence: None)
  Receive Date: 20080821
  Receipt Date: 20080819
  Transmission Date: 20090109
  Serious: Yes (Other)
  Sender: FDA-Public Use
  Company Number: A0743250A

PATIENT
  Age: 38 Year
  Sex: Female

DRUGS (1)
  1. ALLI [Suspect]
     Indication: WEIGHT LOSS DIET
     Route: 048
     Dates: start: 20080812, end: 20080817

REACTIONS (8)
  - BLINDNESS [None]
  - EYE PAIN [None]
  - FLATULENCE [None]
  - HYPERSENSITIVITY [None]
  - LACRIMATION INCREASED [None]
  - PYREXIA [None]
  - RECTAL DISCHARGE [None]
  - VISUAL ACUITY REDUCED [None]
